FAERS Safety Report 25493451 (Version 1)
Quarter: 2025Q2

REPORT INFORMATION
  Report Type: Spontaneous
  Country: PL (occurrence: PL)
  Receive Date: 20250630
  Receipt Date: 20250630
  Transmission Date: 20250716
  Serious: Yes (Other)
  Sender: MYLAN
  Company Number: PL-002147023-NVSC2025PL094557

PATIENT
  Age: 82 Year
  Sex: Female

DRUGS (2)
  1. ZOLEDRONIC ACID [Suspect]
     Active Substance: ZOLEDRONIC ACID
     Indication: Product used for unknown indication
  2. RIBOCICLIB [Suspect]
     Active Substance: RIBOCICLIB
     Indication: Breast cancer
     Dosage: 600 MILLIGRAM, QD
     Dates: start: 202306

REACTIONS (9)
  - Deep vein thrombosis [Unknown]
  - Chronic gastritis [Unknown]
  - Anaemia macrocytic [Unknown]
  - Neutropenia [Unknown]
  - Renal failure [Unknown]
  - Renal impairment [Unknown]
  - Blood creatinine increased [Unknown]
  - Rash [Recovered/Resolved]
  - Therapy partial responder [Unknown]
